FAERS Safety Report 17436976 (Version 3)
Quarter: 2020Q1

REPORT INFORMATION
  Report Type: Spontaneous
  Country: PL (occurrence: PL)
  Receive Date: 20200219
  Receipt Date: 20200303
  Transmission Date: 20200409
  Serious: Yes (Hospitalization, Other)
  Sender: FDA-Public Use
  Company Number: PL-ROCHE-2550217

PATIENT
  Sex: Female

DRUGS (1)
  1. ROACTEMRA [Suspect]
     Active Substance: TOCILIZUMAB
     Indication: JUVENILE IDIOPATHIC ARTHRITIS
     Dosage: LAST INFUSION WAS ON 06/FEB/2020.
     Route: 042
     Dates: start: 201203

REACTIONS (5)
  - Pleural effusion [Unknown]
  - Myocarditis [Unknown]
  - Haemophagocytic lymphohistiocytosis [Unknown]
  - Pain [Unknown]
  - Pneumonitis [Unknown]

NARRATIVE: CASE EVENT DATE: 202002
